FAERS Safety Report 8479432-0 (Version None)
Quarter: 2012Q2

REPORT INFORMATION
  Report Type: 
  Country: None (occurrence: None)
  Receive Date: 20120629
  Receipt Date: 20120619
  Transmission Date: 20120825
  Serious: Yes (Other)
  Sender: FDA-Public Use
  Company Number: NL-BRISTOL-MYERS SQUIBB COMPANY-16724601

PATIENT
  Age: 39 Year
  Sex: Male

DRUGS (1)
  1. MITOTANE [Suspect]
     Indication: CUSHING'S SYNDROME
     Dosage: REDUCED TO 0.375 G DAILY IN JUNE-1985;INCREASED TO 0.5 G
     Dates: start: 19820617, end: 19870901

REACTIONS (2)
  - PIGMENTATION DISORDER [None]
  - ADRENAL INSUFFICIENCY [None]
